FAERS Safety Report 25675807 (Version 2)
Quarter: 2025Q3

REPORT INFORMATION
  Report Type: Spontaneous
  Country: JP (occurrence: JP)
  Receive Date: 20250813
  Receipt Date: 20250826
  Transmission Date: 20251020
  Serious: Yes (Other)
  Sender: INCYTE
  Company Number: JP-INCYTE CORPORATION-2025IN008794

PATIENT

DRUGS (1)
  1. PEMAZYRE [Suspect]
     Active Substance: PEMIGATINIB
     Indication: Cholangiocarcinoma
     Dosage: 13.5 MILLIGRAM, QD (2 WEEKS ON AND 1 WEEK OFF)

REACTIONS (1)
  - Metastases to bone [Unknown]
